FAERS Safety Report 13537073 (Version 3)
Quarter: 2017Q2

REPORT INFORMATION
  Report Type: Report from Study
  Country: US (occurrence: US)
  Receive Date: 20170511
  Receipt Date: 20170620
  Transmission Date: 20170830
  Serious: Yes (Hospitalization, Other)
  Sender: FDA-Public Use
  Company Number: US-ARIAD-2017US008097

PATIENT
  Age: 35 Year
  Sex: Male
  Weight: 70 kg

DRUGS (7)
  1. CLOFARABINE. [Suspect]
     Active Substance: CLOFARABINE
     Indication: ACUTE LYMPHOCYTIC LEUKAEMIA RECURRENT
     Dosage: UNK
  2. MTX [Suspect]
     Active Substance: METHOTREXATE SODIUM
     Indication: ACUTE LYMPHOCYTIC LEUKAEMIA RECURRENT
     Dosage: UNK
     Route: 037
  3. ICLUSIG [Suspect]
     Active Substance: PONATINIB
     Indication: ACUTE LYMPHOCYTIC LEUKAEMIA RECURRENT
     Dosage: 45 MG, QD
     Route: 048
     Dates: start: 20161012
  4. CYTARABINE. [Suspect]
     Active Substance: CYTARABINE
     Indication: ACUTE LYMPHOCYTIC LEUKAEMIA RECURRENT
     Dosage: UNK
     Route: 037
  5. PAXIL [Concomitant]
     Active Substance: PAROXETINE HYDROCHLORIDE
     Indication: DEPRESSION
     Dosage: UNK
  6. INSULIN [Concomitant]
     Active Substance: INSULIN NOS
     Indication: DIABETES MELLITUS
  7. PREDNISONE. [Concomitant]
     Active Substance: PREDNISONE
     Indication: PRODUCT USED FOR UNKNOWN INDICATION

REACTIONS (15)
  - Anal fistula excision [Unknown]
  - Increased appetite [Unknown]
  - Dyspnoea [Unknown]
  - Febrile neutropenia [Not Recovered/Not Resolved]
  - Pain [Unknown]
  - Gonorrhoea [Unknown]
  - Hospitalisation [Unknown]
  - Hidradenitis [Not Recovered/Not Resolved]
  - Headache [Unknown]
  - Seizure [Not Recovered/Not Resolved]
  - Hypokalaemia [Unknown]
  - Dry skin [Not Recovered/Not Resolved]
  - Feeling abnormal [Unknown]
  - Pancytopenia [Not Recovered/Not Resolved]
  - Perirectal abscess [Unknown]

NARRATIVE: CASE EVENT DATE: 20170307
